FAERS Safety Report 23297931 (Version 1)
Quarter: 2023Q4

REPORT INFORMATION
  Report Type: Report from Study
  Country: US (occurrence: US)
  Receive Date: 20231214
  Receipt Date: 20231214
  Transmission Date: 20240110
  Serious: Yes (Hospitalization, Other)
  Sender: FDA-Public Use
  Company Number: US-BAUSCH-BL-2023-018300

PATIENT
  Age: 89 Year
  Sex: Male

DRUGS (3)
  1. XIFAXAN [Suspect]
     Active Substance: RIFAXIMIN
     Indication: Hepatic encephalopathy
     Route: 048
  2. LACTULOSE [Concomitant]
     Active Substance: LACTULOSE
     Indication: Product used for unknown indication
     Dosage: QAM (EVERY MORNING)
  3. LACTULOSE [Concomitant]
     Active Substance: LACTULOSE

REACTIONS (4)
  - Epistaxis [Unknown]
  - Hepatic encephalopathy [Recovering/Resolving]
  - Condition aggravated [Recovering/Resolving]
  - Ascites [Not Recovered/Not Resolved]

NARRATIVE: CASE EVENT DATE: 20231121
